FAERS Safety Report 21775621 (Version 1)
Quarter: 2022Q4

REPORT INFORMATION
  Report Type: Report from Study
  Country: US (occurrence: US)
  Receive Date: 20221226
  Receipt Date: 20221226
  Transmission Date: 20230113
  Serious: No
  Sender: FDA-Public Use
  Company Number: US-BIOVITRUM-2022US15225

PATIENT
  Age: 54 Year
  Sex: Female

DRUGS (10)
  1. KINERET [Suspect]
     Active Substance: ANAKINRA
     Indication: Still^s disease
     Dates: start: 20221217
  2. NORVASC [Concomitant]
     Active Substance: AMLODIPINE BESYLATE
  3. CRANBERRY [Concomitant]
     Active Substance: CRANBERRY
  4. ATENOLOL [Concomitant]
     Active Substance: ATENOLOL
  5. MEDROL [Concomitant]
     Active Substance: METHYLPREDNISOLONE
  6. ERGOCALCIFEROL [Concomitant]
     Active Substance: ERGOCALCIFEROL
  7. CETIRIZINE [Concomitant]
     Active Substance: CETIRIZINE HYDROCHLORIDE
  8. BACTRIM [Concomitant]
     Active Substance: SULFAMETHOXAZOLE\TRIMETHOPRIM
  9. LORATADINE [Concomitant]
     Active Substance: LORATADINE
  10. VITAMINS NOS [Concomitant]
     Active Substance: VITAMINS

REACTIONS (5)
  - Swelling [Unknown]
  - Lymphadenopathy [Unknown]
  - Injection site bruising [Unknown]
  - Injection site pain [Unknown]
  - Off label use [Not Recovered/Not Resolved]

NARRATIVE: CASE EVENT DATE: 20221217
